FAERS Safety Report 6244817-X (Version None)
Quarter: 2009Q2

REPORT INFORMATION
  Report Type: 
  Country: None (occurrence: None)
  Receive Date: 20090619
  Receipt Date: 20090304
  Transmission Date: 20091009
  Serious: No
  Sender: FDA-Public Use
  Company Number: ALL1-2009-00579

PATIENT
  Sex: Female
  Weight: 127 kg

DRUGS (9)
  1. VYVANSE [Suspect]
     Dosage: MG, OTHER; ONE CAPSULE/2 DOSES TAKEN, ORAL
     Route: 048
  2. VITAMIN E [Concomitant]
  3. VITAMIN A [Concomitant]
  4. SALMON OIL [Concomitant]
  5. ALFALFA (MEDICAGO SATIVA) [Concomitant]
  6. VITAMIN B COMP (VITAMIN-B-KOMPLEX STANDARD) [Concomitant]
  7. CALCIUM-MAGNSEIUM WITH ZINC (CALCIUM, MAGNESIUM, ZINC) [Concomitant]
  8. GARLIC (ALLIUM SATIVUM) [Concomitant]
  9. ASCORBIC ACID [Concomitant]

REACTIONS (1)
  - DRUG DIVERSION [None]
